FAERS Safety Report 5974981-9 (Version None)
Quarter: 2008Q4

REPORT INFORMATION
  Report Type: 
  Country: None (occurrence: None)
  Receive Date: 20081128
  Receipt Date: 20081112
  Transmission Date: 20090506
  Serious: Yes (Other)
  Sender: FDA-Public Use
  Company Number: DSA_32708_2008

PATIENT
  Sex: Male

DRUGS (6)
  1. LORAZEPAM [Suspect]
     Indication: DELUSIONAL DISORDER, UNSPECIFIED TYPE
     Dosage: 5 MG QD; 0.5 MG QD
     Dates: start: 20080707, end: 20080708
  2. LORAZEPAM [Suspect]
     Indication: DELUSIONAL DISORDER, UNSPECIFIED TYPE
     Dosage: 5 MG QD; 0.5 MG QD
     Dates: start: 20080709, end: 20080709
  3. LORAZEPAM [Suspect]
     Indication: DELUSIONAL DISORDER, UNSPECIFIED TYPE
     Dosage: 5 MG QD; 0.5 MG QD
     Dates: start: 20080710, end: 20080717
  4. ZYPREXA [Suspect]
     Indication: DRUG USE FOR UNKNOWN INDICATION
     Dosage: 20 MG QD; 15 MG QD; 20 MG QD
     Dates: start: 20080707, end: 20080707
  5. ZYPREXA [Suspect]
     Indication: DRUG USE FOR UNKNOWN INDICATION
     Dosage: 20 MG QD; 15 MG QD; 20 MG QD
     Dates: start: 20080708, end: 20080710
  6. ZYPREXA [Suspect]
     Indication: DRUG USE FOR UNKNOWN INDICATION
     Dosage: 20 MG QD; 15 MG QD; 20 MG QD
     Dates: start: 20080711

REACTIONS (5)
  - CONTUSION [None]
  - FALL [None]
  - HUNTINGTON'S CHOREA [None]
  - LACERATION [None]
  - SEDATION [None]
